FAERS Safety Report 8398199-8 (Version None)
Quarter: 2012Q2

REPORT INFORMATION
  Report Type: 
  Country: None (occurrence: None)
  Receive Date: 20120531
  Receipt Date: 20120521
  Transmission Date: 20120825
  Serious: Yes (Hospitalization)
  Sender: FDA-Public Use
  Company Number: ES-NOVOPROD-352239

PATIENT
  Age: 60 Year

DRUGS (4)
  1. NOVORAPID [Concomitant]
     Indication: TYPE 2 DIABETES MELLITUS
     Dosage: 36 U, QD
     Route: 058
  2. LEVEMIR [Suspect]
     Dosage: 60 U, QD
     Route: 058
  3. LEVEMIR [Suspect]
     Indication: TYPE 2 DIABETES MELLITUS
     Dosage: 60 U, QD
     Route: 058
  4. ENALAPRIL MALEATE [Concomitant]
     Dosage: 20 MG, QD
     Route: 048

REACTIONS (3)
  - EXTREMITY NECROSIS [None]
  - LEUKOCYTOCLASTIC VASCULITIS [None]
  - TYPE III IMMUNE COMPLEX MEDIATED REACTION [None]
